FAERS Safety Report 10029279 (Version 3)
Quarter: 2014Q2

REPORT INFORMATION
  Report Type: Spontaneous
  Country: CN (occurrence: CN)
  Receive Date: 20140321
  Receipt Date: 20140422
  Transmission Date: 20141212
  Serious: Yes (Other)
  Sender: FDA-Public Use
  Company Number: CN-ABBVIE-14P-035-1213705-00

PATIENT
  Age: 82 Year
  Sex: Female

DRUGS (2)
  1. ZEMPLAR [Suspect]
     Indication: HYPERPARATHYROIDISM SECONDARY
     Route: 042
     Dates: start: 20140307, end: 20140310
  2. ZEMPLAR [Suspect]
     Indication: RENAL FAILURE CHRONIC

REACTIONS (1)
  - Sudden hearing loss [Not Recovered/Not Resolved]
